FAERS Safety Report 4946931-5 (Version None)
Quarter: 2006Q1

REPORT INFORMATION
  Report Type: 
  Country: None (occurrence: None)
  Receive Date: 20060131
  Receipt Date: 20051121
  Transmission Date: 20060701
  Serious: No
  Sender: FDA-Public Use
  Company Number: 200519629US

PATIENT
  Age: 38 Year
  Sex: Male

DRUGS (5)
  1. KETEK [Suspect]
     Indication: EAR INFECTION
     Dosage: 800 MG QD PO
     Route: 048
     Dates: start: 20051114
  2. KETEK [Suspect]
     Indication: UPPER RESPIRATORY TRACT INFECTION
     Dosage: 800 MG QD PO
     Route: 048
     Dates: start: 20051114
  3. GLIPIZIDE [Concomitant]
  4. METFORMIN HYDROCHLORIDE [Concomitant]
  5. AVANDIA [Concomitant]

REACTIONS (3)
  - DIZZINESS [None]
  - EYE PAIN [None]
  - VISION BLURRED [None]
